FAERS Safety Report 4492247-3 (Version None)
Quarter: 2004Q4

REPORT INFORMATION
  Report Type: 
  Country: None (occurrence: None)
  Receive Date: 20041103
  Receipt Date: 20041013
  Transmission Date: 20050328
  Serious: Yes (Life-Threatening, Hospitalization, Disabling, Other)
  Sender: FDA-Public Use
  Company Number: US-MERCK-0410USA01993

PATIENT
  Age: 47 Year
  Sex: Female

DRUGS (3)
  1. VIOXX [Suspect]
     Indication: PAIN
     Route: 048
     Dates: start: 20020705, end: 20020701
  2. VIOXX [Suspect]
     Indication: INFLAMMATION
     Route: 048
     Dates: start: 20020705, end: 20020701
  3. SYNTHROID [Concomitant]
     Route: 065

REACTIONS (3)
  - CLOSTRIDIUM COLITIS [None]
  - THROMBOSIS [None]
  - UTERINE LEIOMYOMA [None]
